FAERS Safety Report 16138184 (Version 1)
Quarter: 2019Q1

REPORT INFORMATION
  Report Type: Spontaneous
  Country: FR (occurrence: FR)
  Receive Date: 20190330
  Receipt Date: 20190330
  Transmission Date: 20190418
  Serious: Yes (Hospitalization)
  Sender: FDA-Public Use
  Company Number: FR-ACCORD-116563

PATIENT
  Age: 82 Year
  Sex: Female
  Weight: 64 kg

DRUGS (7)
  1. AMLOR [Suspect]
     Active Substance: AMLODIPINE BESYLATE
     Route: 048
     Dates: start: 20181122, end: 20181122
  2. BISOPROLOL [Suspect]
     Active Substance: BISOPROLOL
     Route: 048
     Dates: start: 20181122, end: 20181122
  3. FUROSEMIDE. [Suspect]
     Active Substance: FUROSEMIDE
     Route: 048
     Dates: start: 20181122, end: 20181122
  4. KARDEGIC [Suspect]
     Active Substance: ASPIRIN DL-LYSINE
     Route: 048
     Dates: start: 20181122, end: 20181122
  5. GLICLAZIDE [Suspect]
     Active Substance: GLICLAZIDE
     Route: 048
     Dates: start: 20181122, end: 20181122
  6. VALSARTAN. [Suspect]
     Active Substance: VALSARTAN
     Route: 048
     Dates: start: 20181122, end: 20181122
  7. METFORMIN [Suspect]
     Active Substance: METFORMIN HYDROCHLORIDE
     Route: 048
     Dates: start: 20181122, end: 20181122

REACTIONS (6)
  - Acute kidney injury [Recovering/Resolving]
  - Atrioventricular block complete [Recovering/Resolving]
  - Lactic acidosis [Recovering/Resolving]
  - Bradycardia [Recovering/Resolving]
  - Cardiogenic shock [Recovering/Resolving]
  - Poisoning deliberate [Unknown]

NARRATIVE: CASE EVENT DATE: 20181122
